FAERS Safety Report 18179125 (Version 4)
Quarter: 2020Q4

REPORT INFORMATION
  Report Type: Report from Study
  Country: US (occurrence: US)
  Receive Date: 20200820
  Receipt Date: 20201229
  Transmission Date: 20210113
  Serious: No
  Sender: FDA-Public Use
  Company Number: NVSC2020US230293

PATIENT
  Age: 72 Year
  Sex: Male

DRUGS (3)
  1. ENTRESTO [Suspect]
     Active Substance: SACUBITRIL\VALSARTAN
     Dosage: 24.26 MG, UNKNOWN
     Route: 048
     Dates: start: 202008
  2. ENTRESTO [Suspect]
     Active Substance: SACUBITRIL\VALSARTAN
     Indication: PRODUCT USED FOR UNKNOWN INDICATION
     Dosage: UNK UNK, UNKNOWN
     Route: 048
     Dates: start: 20200813
  3. ENTRESTO [Suspect]
     Active Substance: SACUBITRIL\VALSARTAN
     Dosage: 49.51 MG, UNKNOWN (49/51MG TO 24/26MG)
     Route: 048
     Dates: start: 202008

REACTIONS (14)
  - Energy increased [Unknown]
  - Somnolence [Recovering/Resolving]
  - Wrong technique in product usage process [Unknown]
  - Fluid retention [Unknown]
  - Weight decreased [Unknown]
  - Chest pain [Recovering/Resolving]
  - Pain in extremity [Unknown]
  - Increased appetite [Unknown]
  - Dyspnoea [Recovering/Resolving]
  - Peripheral swelling [Unknown]
  - Asthenia [Unknown]
  - Dizziness [Recovering/Resolving]
  - Depressed mood [Recovering/Resolving]
  - Fatigue [Recovering/Resolving]

NARRATIVE: CASE EVENT DATE: 202008
